FAERS Safety Report 8666755 (Version 3)
Quarter: 2013Q4

REPORT INFORMATION
  Report Type: Report from Study
  Country: JP (occurrence: JP)
  Receive Date: 20120716
  Receipt Date: 20131107
  Transmission Date: 20140711
  Serious: Yes (Other)
  Sender: FDA-Public Use
  Company Number: JP-VERTEX PHARMACEUTICALS INC.-AE-2012-010120

PATIENT
  Age: 56 Year
  Sex: Male

DRUGS (10)
  1. VX-950 (TELAPREVIR) [Suspect]
     Indication: CHRONIC HEPATITIS C
     Dosage: 1500 MG, QD
     Route: 048
     Dates: start: 20120511
  2. VX-950 (TELAPREVIR) [Suspect]
     Dosage: UNK
     Route: 048
     Dates: end: 20120803
  3. RIBAVIRIN [Suspect]
     Indication: CHRONIC HEPATITIS C
     Dosage: 400 MG, QD
     Route: 048
     Dates: start: 20120511, end: 20120601
  4. RIBAVIRIN [Suspect]
     Dosage: 200 MG, QD
     Route: 048
     Dates: start: 20120602, end: 20121026
  5. PEGINTRON [Suspect]
     Indication: CHRONIC HEPATITIS C
     Dosage: 1.5 ?G/KG, QW
     Route: 058
     Dates: start: 20120511, end: 20120518
  6. PEGINTRON [Suspect]
     Dosage: 60 ?G, QW
     Route: 058
     Dates: start: 20120519, end: 20121019
  7. TAKEPRON [Concomitant]
     Dosage: 15 MG, QD
     Route: 048
  8. CAMOSTATE [Concomitant]
     Dosage: 300 MG, QD
     Route: 048
  9. RIZABEN [Concomitant]
     Dosage: 300 MG, QD
     Route: 048
  10. FERROMIA [Concomitant]
     Dosage: 100 MG, QD
     Route: 048

REACTIONS (1)
  - Neutrophil count decreased [Recovered/Resolved]
